FAERS Safety Report 6909190-X (Version None)
Quarter: 2010Q3

REPORT INFORMATION
  Report Type: 
  Country: None (occurrence: None)
  Receive Date: 20100716
  Receipt Date: 20090122
  Transmission Date: 20110219
  Serious: Yes (Other)
  Sender: FDA-Public Use
  Company Number: 2009159647

PATIENT
  Age: 57 Year
  Sex: Female

DRUGS (2)
  1. CELEBREX [Suspect]
     Dosage: 400 MG, 1X/DAY
     Dates: start: 19990623, end: 20030903
  2. BEXTRA [Suspect]
     Dosage: 20 MG
     Dates: start: 20041015, end: 20050301

REACTIONS (1)
  - CEREBROVASCULAR ACCIDENT [None]
